FAERS Safety Report 21314557 (Version 1)
Quarter: 2022Q3

REPORT INFORMATION
  Report Type: Other
  Country: CN (occurrence: None)
  Receive Date: 20220909
  Receipt Date: 20220909
  Transmission Date: 20221026
  Serious: Yes (Death)
  Sender: FDA-Public Use
  Company Number: CN-ROCHE-3174595

PATIENT

DRUGS (1)
  1. ALECTINIB [Suspect]
     Active Substance: ALECTINIB
     Indication: Non-small cell lung cancer
     Route: 065

REACTIONS (2)
  - Pneumonitis [Fatal]
  - Respiratory failure [Fatal]
